FAERS Safety Report 9341928 (Version 1)
Quarter: 2013Q2

REPORT INFORMATION
  Report Type: Spontaneous
  Country: IN (occurrence: None)
  Receive Date: 20130606
  Receipt Date: 20130606
  Transmission Date: 20140414
  Serious: Yes (Life-Threatening, Hospitalization)
  Sender: FDA-Public Use
  Company Number: 2013/115

PATIENT
  Age: 16 Year
  Sex: Male
  Weight: 45 kg

DRUGS (1)
  1. OLANZAPINE [Suspect]
     Route: 048

REACTIONS (9)
  - Overdose [None]
  - Tachycardia [None]
  - Hypotension [None]
  - Myoclonus [None]
  - Muscle rigidity [None]
  - Coma [None]
  - Leukocytosis [None]
  - Hyperpyrexia [None]
  - Suicide attempt [None]
